FAERS Safety Report 8167309-X (Version None)
Quarter: 2012Q1

REPORT INFORMATION
  Report Type: 
  Country: None (occurrence: None)
  Receive Date: 20120227
  Receipt Date: 20120220
  Transmission Date: 20120608
  Serious: Yes (Hospitalization, Other)
  Sender: FDA-Public Use
  Company Number: ES-BAYER-2012-008147

PATIENT
  Age: 76 Year
  Sex: Female

DRUGS (2)
  1. ASPIRIN [Suspect]
     Route: 048
     Dates: start: 20100101
  2. ANTI-DIABETICS [Suspect]
     Dosage: 0.6 MG, HS
     Route: 058
     Dates: start: 20111229, end: 20111229

REACTIONS (3)
  - RECTAL HAEMORRHAGE [None]
  - ANGIODYSPLASIA [None]
  - RECTAL POLYP [None]
